FAERS Safety Report 14191535 (Version 1)
Quarter: 2017Q4

REPORT INFORMATION
  Report Type: Spontaneous
  Country: US (occurrence: US)
  Receive Date: 20171115
  Receipt Date: 20171115
  Transmission Date: 20180321
  Serious: No
  Sender: FDA-Public Use
  Company Number: US-MIKART, INC.-2034146

PATIENT
  Age: 70 Year
  Sex: Female

DRUGS (1)
  1. CARBINOXAMINE MALEATE. [Suspect]
     Active Substance: CARBINOXAMINE MALEATE
     Indication: MULTIPLE ALLERGIES
     Route: 048
     Dates: start: 20171011, end: 20171013

REACTIONS (4)
  - Diarrhoea [Recovered/Resolved]
  - Fatigue [Recovered/Resolved]
  - Flatulence [Recovered/Resolved]
  - Asthenia [None]

NARRATIVE: CASE EVENT DATE: 20171011
